FAERS Safety Report 9369888 (Version 1)
Quarter: 2013Q2

REPORT INFORMATION
  Report Type: Spontaneous
  Country: ES (occurrence: ES)
  Receive Date: 20130626
  Receipt Date: 20130626
  Transmission Date: 20140414
  Serious: Yes (Other)
  Sender: FDA-Public Use
  Company Number: ES-PFIZER INC-2013188178

PATIENT
  Age: 81 Year
  Sex: Female

DRUGS (3)
  1. VANDRAL [Suspect]
     Dosage: 150 MG, 1X/DAY
     Route: 048
     Dates: start: 2012
  2. LORAZEPAM [Suspect]
     Indication: DEPRESSION
     Dosage: 5 MG, 3X/DAY
     Route: 048
     Dates: start: 2012
  3. LEXATIN [Suspect]
     Indication: DEPRESSION
     Dosage: 1.5 MG, 3X/DAY
     Route: 048
     Dates: start: 2012, end: 20130510

REACTIONS (2)
  - Fall [Recovering/Resolving]
  - Dizziness [Recovering/Resolving]
